FAERS Safety Report 7257559-9 (Version None)
Quarter: 2011Q1

REPORT INFORMATION
  Report Type: 
  Country: None (occurrence: None)
  Receive Date: 20110129
  Receipt Date: 20100602
  Transmission Date: 20110831
  Serious: No
  Sender: FDA-Public Use
  Company Number: US-ABBOTT-10P-163-0649157-00

PATIENT
  Age: 35 Year
  Sex: Female
  Weight: 60.836 kg

DRUGS (8)
  1. DICLOFENAC [Concomitant]
     Indication: PSORIASIS
  2. UNKNOWN MEDICATION [Concomitant]
     Indication: CONTRACEPTION
     Route: 048
  3. OMEPRAZOLE [Concomitant]
     Indication: GASTRIC DISORDER
     Route: 048
  4. HUMIRA [Suspect]
     Indication: PSORIATIC ARTHROPATHY
     Route: 058
  5. UNKNOWN CREAM [Concomitant]
     Indication: PSORIASIS
     Dosage: MILD TOPICAL CREAM
  6. HUMIRA [Suspect]
     Indication: PSORIASIS
     Route: 058
  7. HUMIRA [Suspect]
     Route: 058
  8. MULTI-VITAMIN [Concomitant]
     Indication: PRODUCT USED FOR UNKNOWN INDICATION

REACTIONS (1)
  - PSORIASIS [None]
